FAERS Safety Report 10074317 (Version 2)
Quarter: 2014Q2

REPORT INFORMATION
  Report Type: Report from Study
  Country: JP (occurrence: JP)
  Receive Date: 20140411
  Receipt Date: 20140411
  Transmission Date: 20141212
  Serious: Yes (Other)
  Sender: FDA-Public Use
  Company Number: JP-TAKEDA-TCI2013A04903

PATIENT
  Age: 79 Year
  Sex: Male
  Weight: 60 kg

DRUGS (11)
  1. NESINA TABLETS 25MG [Suspect]
     Indication: TYPE 2 DIABETES MELLITUS
     Dosage: 25 MG, QD
     Route: 048
     Dates: start: 20110408, end: 20130622
  2. METACT COMBINATION [Concomitant]
     Indication: TYPE 2 DIABETES MELLITUS
     Dosage: 1 DF, QD
     Route: 048
     Dates: start: 20110722, end: 20130622
  3. GASTER D [Concomitant]
     Dosage: 10 MG, 1 DAY
     Route: 048
     Dates: start: 20110408, end: 20130622
  4. OLMETEC [Concomitant]
     Dosage: 20 MG, 1 DAY
     Route: 048
     Dates: start: 20120803, end: 20130622
  5. OLMETEC [Concomitant]
     Dosage: 40 MG, 1 DAY
     Route: 048
     Dates: start: 20110408, end: 20130802
  6. URIEF [Concomitant]
     Indication: BENIGN PROSTATIC HYPERPLASIA
     Dosage: 8 MG, 1 DAY
     Route: 048
     Dates: start: 20110408, end: 20130622
  7. FEBURIC [Concomitant]
     Dosage: 10 MG, 1 DAY
     Route: 048
     Dates: start: 20120412, end: 20130622
  8. EPADEL-S [Concomitant]
     Indication: HYPERLIPIDAEMIA
     Dosage: 1800 MG, 1 DAY
     Route: 048
     Dates: start: 20110408, end: 20130622
  9. BAYASPIRIN [Concomitant]
     Dosage: 100 MG, 1 DAY
     Route: 048
     Dates: start: 20110408, end: 20110630
  10. ZYLORIC [Concomitant]
     Dosage: 100 MG, 1 DAY
     Route: 048
     Dates: start: 20110722, end: 20120411
  11. ADALAT CR [Concomitant]
     Dosage: 10 MG, 1 DAY
     Route: 048
     Dates: start: 20110408, end: 20110721

REACTIONS (1)
  - Cerebral infarction [Recovered/Resolved]
